FAERS Safety Report 15298162 (Version 1)
Quarter: 2018Q3

REPORT INFORMATION
  Report Type: Report from Study
  Country: None (occurrence: US)
  Receive Date: 20180820
  Receipt Date: 20180820
  Transmission Date: 20181010
  Serious: Yes (Hospitalization)
  Sender: FDA-Public Use
  Company Number: US-BAUSCH-BL-2018-022691

PATIENT
  Sex: Male

DRUGS (2)
  1. DEMSER [Suspect]
     Active Substance: METYROSINE
     Indication: DIGEORGE^S SYNDROME
     Route: 065
     Dates: start: 2018
  2. DEMSER [Suspect]
     Active Substance: METYROSINE
     Indication: OFF LABEL USE

REACTIONS (2)
  - Hospitalisation [Unknown]
  - Off label use [Unknown]

NARRATIVE: CASE EVENT DATE: 2018
